FAERS Safety Report 9537976 (Version 2)
Quarter: 2013Q4

REPORT INFORMATION
  Report Type: Report from Study
  Country: DE (occurrence: DE)
  Receive Date: 20130919
  Receipt Date: 20131001
  Transmission Date: 20140711
  Serious: Yes (Death, Hospitalization)
  Sender: FDA-Public Use
  Company Number: DE-ROCHE-1277425

PATIENT
  Age: 54 Year
  Sex: Male

DRUGS (7)
  1. PEG-INTERFERON ALFA 2A [Suspect]
     Indication: MALIGNANT MELANOMA
     Route: 065
  2. METFORMIN [Concomitant]
     Route: 065
  3. LERCANIDIPINE [Concomitant]
  4. TORASEMIDE [Concomitant]
     Route: 065
  5. LASIX [Concomitant]
  6. MODIP [Concomitant]
  7. BELOC-ZOK [Concomitant]

REACTIONS (1)
  - Cardiac failure [Fatal]
